FAERS Safety Report 9017950 (Version 1)
Quarter: 2013Q1

REPORT INFORMATION
  Report Type: Spontaneous
  Country: US (occurrence: US)
  Receive Date: 20130118
  Receipt Date: 20130118
  Transmission Date: 20140127
  Serious: No
  Sender: FDA-Public Use
  Company Number: US-BIOGENIDEC-2013BI003057

PATIENT
  Sex: Female

DRUGS (2)
  1. AVONEX [Suspect]
     Indication: MULTIPLE SCLEROSIS
     Route: 030
  2. AVONEX [Suspect]
     Indication: MULTIPLE SCLEROSIS
     Route: 030
     Dates: start: 20100820

REACTIONS (6)
  - Injection site haemorrhage [Unknown]
  - Enteritis infectious [Unknown]
  - Dizziness [Unknown]
  - Injection site urticaria [Unknown]
  - Injection site bruising [Unknown]
  - Injection site pain [Unknown]
